FAERS Safety Report 4463753-2 (Version None)
Quarter: 2004Q3

REPORT INFORMATION
  Report Type: 
  Country: None (occurrence: None)
  Receive Date: 20040929
  Receipt Date: 20040915
  Transmission Date: 20050211
  Serious: Yes (Death, Other)
  Sender: FDA-Public Use
  Company Number: FR_040904720

PATIENT
  Age: 48 Year
  Sex: Female

DRUGS (2)
  1. ZYPREXA [Suspect]
     Indication: PSYCHOTIC DISORDER
     Dates: start: 20040301, end: 20040715
  2. LOXAPINE SUCCINATE [Concomitant]

REACTIONS (2)
  - CARDIAC ARREST [None]
  - WEIGHT INCREASED [None]
